FAERS Safety Report 7225444-4 (Version None)
Quarter: 2011Q1

REPORT INFORMATION
  Report Type: 
  Country: None (occurrence: None)
  Receive Date: 20110113
  Receipt Date: 20101118
  Transmission Date: 20110831
  Serious: Yes (Hospitalization)
  Sender: FDA-Public Use
  Company Number: US-BAYER-201029748NA

PATIENT
  Sex: Female
  Weight: 52.154 kg

DRUGS (9)
  1. ADVAIR HFA [Concomitant]
     Dosage: 250/50
     Route: 055
     Dates: start: 20030513
  2. YASMIN [Suspect]
     Indication: CONTRACEPTION
     Dosage: UNK
     Route: 048
     Dates: start: 20020101, end: 20040101
  3. NEXIUM [Concomitant]
     Indication: GASTROOESOPHAGEAL REFLUX DISEASE
     Dosage: 40 MG, UNK
     Route: 048
     Dates: start: 20031130
  4. DIFLUCAN [Concomitant]
     Dosage: 150 UNK, UNK
     Route: 048
     Dates: start: 20030106
  5. ALLEGRA-D 12 HOUR [Concomitant]
     Indication: HYPERSENSITIVITY
     Dosage: 1 TAB Q 12H
     Route: 048
  6. LEVORA 0.15/30-28 [Concomitant]
     Dosage: UNK
     Dates: start: 20050201, end: 20050501
  7. TERAZOL 1 [Concomitant]
     Dosage: UNK
     Route: 067
     Dates: start: 20030905
  8. OXYCODONE HCL AND ACETAMINOPHEN [Concomitant]
     Dosage: 5MG/325MG
     Route: 048
     Dates: start: 20030911
  9. YAZ [Suspect]
     Indication: CONTRACEPTION
     Dosage: UNK
     Dates: start: 20060801, end: 20100101

REACTIONS (5)
  - ABDOMINAL PAIN UPPER [None]
  - NAUSEA [None]
  - CHOLECYSTITIS ACUTE [None]
  - VOMITING [None]
  - CHOLELITHIASIS [None]
